FAERS Safety Report 20634896 (Version 2)
Quarter: 2022Q2

REPORT INFORMATION
  Report Type: Spontaneous
  Country: US (occurrence: US)
  Receive Date: 20220325
  Receipt Date: 20220420
  Transmission Date: 20220721
  Serious: No
  Sender: FDA-Public Use
  Company Number: US-HETERO-HET2022US00712

PATIENT
  Sex: Female
  Weight: 82 kg

DRUGS (2)
  1. LOSARTAN [Suspect]
     Active Substance: LOSARTAN
     Indication: Hypertension
     Dosage: 100 MG
     Route: 065
  2. LOSARTAN [Suspect]
     Active Substance: LOSARTAN
     Dosage: 50 MG, QD
     Route: 065
     Dates: start: 20220220

REACTIONS (1)
  - Muscle spasms [Recovered/Resolved]
